FAERS Safety Report 5406590-4 (Version None)
Quarter: 2007Q3

REPORT INFORMATION
  Report Type: 
  Country: None (occurrence: None)
  Receive Date: 20070806
  Receipt Date: 20070725
  Transmission Date: 20080115
  Serious: Yes (Other)
  Sender: FDA-Public Use
  Company Number: US-PFIZER INC-2007061520

PATIENT
  Sex: Female
  Weight: 68.181 kg

DRUGS (3)
  1. AMLODIPINE [Suspect]
     Indication: HYPERTENSION
  2. TENORMIN [Concomitant]
  3. PREDNISONE TAB [Concomitant]

REACTIONS (2)
  - HYPERSENSITIVITY [None]
  - RASH MACULAR [None]
